FAERS Safety Report 7580326-3 (Version None)
Quarter: 2011Q2

REPORT INFORMATION
  Report Type: 
  Country: None (occurrence: None)
  Receive Date: 20110629
  Receipt Date: 20110623
  Transmission Date: 20111010
  Serious: Yes (Death)
  Sender: FDA-Public Use
  Company Number: CA-ROCHE-765374

PATIENT
  Sex: Female
  Weight: 95 kg

DRUGS (18)
  1. METOPROLOL TARTRATE [Concomitant]
     Dates: start: 20100315
  2. RAMIPRIL [Concomitant]
     Dates: start: 20100315, end: 20100315
  3. LEVOTHYROXINE SODIUM [Concomitant]
     Dates: start: 19990101
  4. PREDNISONE [Concomitant]
     Dates: start: 20101118
  5. LIPITOR [Concomitant]
     Dates: start: 20100315
  6. ASPIRIN [Concomitant]
     Dates: start: 20100315
  7. PLAVIX [Concomitant]
     Dates: start: 20100315
  8. NITROGLYCERIN SPRAY [Concomitant]
     Dates: start: 20101108
  9. NAPROXEN [Concomitant]
     Dosage: DRUG NAME REPORTED AS NAPROXYEN.
     Route: 065
     Dates: start: 20081022
  10. CALCIUM CARBONATE [Concomitant]
     Dates: start: 20090601
  11. FOLIC ACID [Concomitant]
     Dosage: DOSE: 5 MG QS.
     Dates: start: 20091211
  12. RAMIPRIL [Concomitant]
     Dates: start: 20100316
  13. PREDNISONE [Concomitant]
     Dates: start: 20091110
  14. VITAMIN D [Concomitant]
     Dates: start: 20090601
  15. TOCILIZUMAB [Suspect]
     Indication: RHEUMATOID ARTHRITIS
     Dosage: FORM : LIQUID, LAST DOSE PRIOR TO SAE : 03 MAR 2011,FREQ:Q4S,PERMANENTLY DISCONTINUED:11MAR2011
     Route: 042
     Dates: start: 20091209, end: 20110311
  16. HYDROCHLOROTHIAZIDE [Concomitant]
     Dates: start: 20091023
  17. ZOPICLONE [Concomitant]
     Dates: start: 20091117
  18. METHOTREXATE [Suspect]
     Indication: RHEUMATOID ARTHRITIS
     Dosage: FREQUENCY: QS,PERMANENTLY DISCONTINUED:11MAR2011
     Route: 048
     Dates: start: 20091209, end: 20110311

REACTIONS (1)
  - LUNG CANCER METASTATIC [None]
